FAERS Safety Report 18749405 (Version 1)
Quarter: 2021Q1

REPORT INFORMATION
  Report Type: Report from Study
  Country: IN (occurrence: IN)
  Receive Date: 20210116
  Receipt Date: 20210116
  Transmission Date: 20210419
  Serious: Yes (Other)
  Sender: FDA-Public Use
  Company Number: NVSC2020IN191205

PATIENT
  Sex: Female

DRUGS (4)
  1. KRYXANA [Suspect]
     Active Substance: RIBOCICLIB
     Dosage: 200 MG, QD
     Route: 048
     Dates: start: 20200817, end: 20200826
  2. KRYXANA [Suspect]
     Active Substance: RIBOCICLIB
     Dosage: 400 MG, QD
     Route: 048
     Dates: start: 20200713, end: 20200730
  3. KRYXANA [Suspect]
     Active Substance: RIBOCICLIB
     Indication: BREAST CANCER METASTATIC
     Dosage: 600 MG, QD
     Route: 048
     Dates: start: 20200613, end: 20200617
  4. KRYXANA [Suspect]
     Active Substance: RIBOCICLIB
     Dosage: 200 MG + 400 MG ALT DAYS
     Route: 065
     Dates: start: 20200827

REACTIONS (4)
  - Pseudocirrhosis [Unknown]
  - Platelet count decreased [Unknown]
  - Platelet count increased [Unknown]
  - Ascites [Unknown]

NARRATIVE: CASE EVENT DATE: 20200701
